FAERS Safety Report 17540775 (Version 1)
Quarter: 2020Q1

REPORT INFORMATION
  Report Type: Report from Study
  Country: None (occurrence: LB)
  Receive Date: 20200313
  Receipt Date: 20200313
  Transmission Date: 20200409
  Serious: Yes (Death, Hospitalization, Other)
  Sender: FDA-Public Use
  Company Number: LB-ABBVIE-19K-093-3185179-00

PATIENT
  Age: 87 Year
  Sex: Male

DRUGS (1)
  1. IMBRUVICA [Suspect]
     Active Substance: IBRUTINIB
     Indication: CHRONIC LYMPHOCYTIC LEUKAEMIA
     Route: 048
     Dates: start: 20170307

REACTIONS (10)
  - Visual impairment [Unknown]
  - Death [Fatal]
  - Off label use [Unknown]
  - Hypoacusis [Unknown]
  - Decreased appetite [Unknown]
  - Incorrect dose administered [Unknown]
  - Hospitalisation [Unknown]
  - Viraemia [Recovered/Resolved]
  - Vomiting [Unknown]
  - Malaise [Unknown]

NARRATIVE: CASE EVENT DATE: 20191122
